FAERS Safety Report 7432006-2 (Version None)
Quarter: 2011Q2

REPORT INFORMATION
  Report Type: 
  Country: None (occurrence: None)
  Receive Date: 20110422
  Receipt Date: 20110407
  Transmission Date: 20111010
  Serious: Yes (Other)
  Sender: FDA-Public Use
  Company Number: US-CELGENEUS-163-21880-11022902

PATIENT
  Sex: Female
  Weight: 104.5 kg

DRUGS (24)
  1. SOLU-MEDROL [Concomitant]
     Indication: BONE PAIN
     Dosage: 20 MILLIGRAM
     Route: 065
  2. TRAZODONE HCL [Concomitant]
     Route: 048
  3. FLEXERIL [Concomitant]
     Indication: MUSCLE SPASMS
     Dosage: 5 MILLIGRAM
     Route: 048
  4. VAGIFEM [Concomitant]
     Dosage: 10 MICROGRAM
     Route: 067
  5. ALBUTEROL SULFATE AUTOHALER [Concomitant]
     Dosage: 90 MCG/ACTUATION
     Route: 055
  6. AEROSOL INHALER [Concomitant]
     Route: 055
  7. VICODIN [Concomitant]
     Dosage: 5 MG-500 MG
     Route: 048
  8. VELCADE [Concomitant]
     Route: 065
     Dates: start: 20100818
  9. PROZAC [Concomitant]
     Dosage: 60 MILLIGRAM
     Route: 048
  10. TESTOSTERONE [Concomitant]
     Route: 067
  11. LORAZEPAM [Concomitant]
     Dosage: 1 MG/1 OR TABLETS
     Route: 048
  12. COD LIVER OIL [Concomitant]
     Route: 048
  13. VELCADE [Concomitant]
     Route: 065
     Dates: start: 20100101
  14. DEXAMETHASONE [Concomitant]
     Indication: MULTIPLE MYELOMA
     Dosage: 20 MILLIGRAM
     Route: 065
     Dates: start: 20100101
  15. DEXAMETHASONE [Concomitant]
     Dosage: 20 MILLIGRAM
     Route: 065
     Dates: end: 20100811
  16. REVLIMID [Suspect]
     Indication: MULTIPLE MYELOMA
     Dosage: 10 MILLIGRAM
     Route: 048
     Dates: start: 20100401, end: 20100811
  17. PRILOSEC [Concomitant]
     Dosage: 20 MILLIGRAM
     Route: 048
  18. MELPHALAN [Concomitant]
     Indication: MULTIPLE MYELOMA
     Dosage: 2 MILLIGRAM
     Route: 048
     Dates: start: 20100101
  19. REVLIMID [Suspect]
     Route: 048
     Dates: start: 20100818
  20. BIAXIN [Concomitant]
     Route: 065
     Dates: end: 20100811
  21. ASPIRIN [Concomitant]
     Route: 065
  22. BIOPHOSPHONATE [Concomitant]
     Route: 051
  23. GABAPENTIN [Concomitant]
     Dosage: 300 MILLIGRAM
     Route: 048
  24. PREDNISONE [Concomitant]
     Indication: MULTIPLE MYELOMA
     Dosage: 50 MILLIGRAM
     Route: 048
     Dates: start: 20100101

REACTIONS (3)
  - IRRITABLE BOWEL SYNDROME [None]
  - DEEP VEIN THROMBOSIS [None]
  - INJURY [None]
